FAERS Safety Report 9378910 (Version 1)
Quarter: 2013Q2

REPORT INFORMATION
  Report Type: Spontaneous
  Country: US (occurrence: None)
  Receive Date: 20130626
  Receipt Date: 20130626
  Transmission Date: 20140414
  Serious: Yes (Other)
  Sender: FDA-Public Use
  Company Number: SYM-2013-05030

PATIENT
  Age: 51 Year
  Sex: Male

DRUGS (1)
  1. IMIQUIMOD [Suspect]
     Indication: SQUAMOUS CELL CARCINOMA
     Route: 061

REACTIONS (5)
  - Neuropsychiatric syndrome [None]
  - Insomnia [None]
  - Agitation [None]
  - Thinking abnormal [None]
  - Mania [None]
